FAERS Safety Report 24374259 (Version 1)
Quarter: 2024Q3

REPORT INFORMATION
  Report Type: Spontaneous
  Country: CA (occurrence: CA)
  Receive Date: 20240927
  Receipt Date: 20240927
  Transmission Date: 20241016
  Serious: Yes (Hospitalization, Other)
  Sender: BAXTER
  Company Number: CA-BAXTER-2024BAX024912

PATIENT
  Age: 48 Year
  Sex: Female
  Weight: 106 kg

DRUGS (60)
  1. CYCLOPHOSPHAMIDE [Suspect]
     Active Substance: CYCLOPHOSPHAMIDE
     Indication: Tardive dyskinesia
     Dosage: UNK
     Route: 042
  2. CYCLOPHOSPHAMIDE [Suspect]
     Active Substance: CYCLOPHOSPHAMIDE
     Indication: Breast cancer female
     Dosage: UNK
     Route: 042
  3. CYCLOPHOSPHAMIDE [Suspect]
     Active Substance: CYCLOPHOSPHAMIDE
     Dosage: UNK
     Route: 065
  4. CYCLOPHOSPHAMIDE [Suspect]
     Active Substance: CYCLOPHOSPHAMIDE
     Dosage: UNK, DOSAGE FORM: NOT SPECIFIED
     Route: 042
  5. CYCLOPHOSPHAMIDE [Suspect]
     Active Substance: CYCLOPHOSPHAMIDE
     Dosage: 1360.0 MILLIGRAM, DOSAGE FORM: NOT SPECIFIED
     Route: 042
  6. DOXORUBICIN [Suspect]
     Active Substance: DOXORUBICIN
     Indication: Product used for unknown indication
     Dosage: UNK, DOSAGE FORM: NOT SPECIFIED
     Route: 042
  7. DOXORUBICIN [Suspect]
     Active Substance: DOXORUBICIN
     Indication: Breast cancer female
     Dosage: UNK
     Route: 042
  8. DOXORUBICIN [Suspect]
     Active Substance: DOXORUBICIN
     Dosage: 136.0 MILLIGRAM
     Route: 042
  9. DOXORUBICIN [Suspect]
     Active Substance: DOXORUBICIN
     Dosage: UNK, DOSAGE FORM: SOLUTION FOR INJECTION
     Route: 042
  10. ONDANSETRON [Suspect]
     Active Substance: ONDANSETRON
     Indication: Supportive care
     Dosage: 8.0 MILLIGRAM
     Route: 048
  11. ONDANSETRON [Suspect]
     Active Substance: ONDANSETRON
     Dosage: UNK
     Route: 048
  12. ONDANSETRON [Suspect]
     Active Substance: ONDANSETRON
     Dosage: UNK
     Route: 065
  13. ACETAMINOPHEN\CODEINE PHOSPHATE [Suspect]
     Active Substance: ACETAMINOPHEN\CODEINE PHOSPHATE
     Indication: Tardive dyskinesia
     Dosage: UNK, DOSAGE FORM: TABLET
     Route: 065
  14. ACETAMINOPHEN\CODEINE PHOSPHATE [Suspect]
     Active Substance: ACETAMINOPHEN\CODEINE PHOSPHATE
     Indication: Product used for unknown indication
     Dosage: 30.0 MILLIGRAM, 6 EVERY 1 DAYS
     Route: 065
  15. APREPITANT [Suspect]
     Active Substance: APREPITANT
     Indication: Supportive care
     Dosage: 80.0 MILLIGRAM, 1 EVERY 1 DAYS
     Route: 048
  16. APREPITANT [Suspect]
     Active Substance: APREPITANT
     Dosage: 125.0 MILLIGRAM
     Route: 048
  17. BETAMETHASONE [Suspect]
     Active Substance: BETAMETHASONE
     Indication: Tardive dyskinesia
     Dosage: UNK
     Route: 048
  18. BETAMETHASONE [Suspect]
     Active Substance: BETAMETHASONE
     Dosage: UNK, 2 EVERY 1 DAYS
     Route: 065
  19. BETAMETHASONE [Suspect]
     Active Substance: BETAMETHASONE
     Dosage: UNK
     Route: 065
  20. DEXAMETHASONE [Suspect]
     Active Substance: DEXAMETHASONE
     Indication: Supportive care
     Dosage: UNK, DOSAGE FORM: NOT SPECIFIED
     Route: 048
  21. DEXAMETHASONE [Suspect]
     Active Substance: DEXAMETHASONE
     Dosage: UNK
     Route: 048
  22. DEXAMETHASONE SODIUM PHOSPHATE [Suspect]
     Active Substance: DEXAMETHASONE PHOSPHATE\DEXAMETHASONE SODIUM PHOSPHATE
     Indication: Supportive care
     Dosage: 20.0 MILLIGRAM, 1 EVERY 1 DAYS
     Route: 048
  23. EMEND [Suspect]
     Active Substance: APREPITANT
     Indication: Supportive care
     Dosage: UNK
     Route: 048
  24. EMEND [Suspect]
     Active Substance: APREPITANT
     Dosage: UNK
     Route: 048
  25. EMEND [Suspect]
     Active Substance: APREPITANT
     Dosage: UNK
     Route: 048
  26. ENOXAPARIN [Suspect]
     Active Substance: ENOXAPARIN
     Indication: Tardive dyskinesia
     Dosage: UNK, DOSAGE FORM: SOLUTION FOR INJECTION
     Route: 058
  27. ENOXAPARIN [Suspect]
     Active Substance: ENOXAPARIN
     Dosage: 150.0 MILLIGRAM, 1 EVERY 1 DAYS, DOSAGE FORM: SOLUTION FOR INJECTION
     Route: 058
  28. ENOXAPARIN [Suspect]
     Active Substance: ENOXAPARIN
     Dosage: 150.0 MILLIGRAM, 1 EVERY 1 DAYS, DOSAGE FORM: INJECTION
     Route: 058
  29. FILGRASTIM [Suspect]
     Active Substance: FILGRASTIM
     Indication: Supportive care
     Dosage: UNK
     Route: 048
  30. FILGRASTIM [Suspect]
     Active Substance: FILGRASTIM
     Dosage: 480.0 MICROGRAM, 1 EVERY 1 DAYS
     Route: 065
  31. LEVOFLOXACIN [Suspect]
     Active Substance: LEVOFLOXACIN
     Indication: Tardive dyskinesia
     Dosage: 500.0 MILLIGRAM, 1 EVERY 1 DAYS
     Route: 048
  32. LEVOFLOXACIN [Suspect]
     Active Substance: LEVOFLOXACIN
     Dosage: UNK
     Route: 048
  33. LORAZEPAM [Suspect]
     Active Substance: LORAZEPAM
     Indication: Tardive dyskinesia
     Dosage: 1.0 MILLIGRAM, 1 EVERY 1 DAYS, DOSAGE FORM: NOT SPECIFIED
     Route: 048
  34. LORAZEPAM [Suspect]
     Active Substance: LORAZEPAM
     Dosage: UNK
     Route: 048
  35. METOCLOPRAMIDE [Suspect]
     Active Substance: METOCLOPRAMIDE
     Indication: Tardive dyskinesia
     Dosage: 10.0 MILLIGRAM, 4 EVERY 1 DAYS
     Route: 048
  36. METOCLOPRAMIDE [Suspect]
     Active Substance: METOCLOPRAMIDE
     Indication: Product used for unknown indication
     Dosage: 40.0 MILLIGRAM, 1 EVERY 1 DAYS
     Route: 048
  37. METOCLOPRAMIDE [Suspect]
     Active Substance: METOCLOPRAMIDE
     Dosage: UNK
     Route: 048
  38. NEULASTA [Suspect]
     Active Substance: PEGFILGRASTIM
     Indication: Supportive care
     Route: 058
  39. NEULASTA [Suspect]
     Active Substance: PEGFILGRASTIM
     Dosage: UNK
     Route: 058
  40. NEULASTA [Suspect]
     Active Substance: PEGFILGRASTIM
     Dosage: UNK, DOSAGE FORM: SOLUTION SUBCUTANEOUS
     Route: 058
  41. NEUPOGEN [Suspect]
     Active Substance: FILGRASTIM
     Indication: Supportive care
     Dosage: UNK
     Route: 065
  42. NEUPOGEN [Suspect]
     Active Substance: FILGRASTIM
     Dosage: UNK
     Route: 048
  43. NEUPOGEN [Suspect]
     Active Substance: FILGRASTIM
     Dosage: UNK
     Route: 042
  44. NEUPOGEN [Suspect]
     Active Substance: FILGRASTIM
     Dosage: UNK, DOSAGE FORM: SOLUTION INTRAVENOUS
     Route: 048
  45. NEUPOGEN [Suspect]
     Active Substance: FILGRASTIM
     Dosage: UNK
     Route: 065
  46. PACLITAXEL [Suspect]
     Active Substance: PACLITAXEL
     Indication: Product used for unknown indication
     Dosage: 303.0 MILLIGRAM, DOSAGE FORM: LIQUID INTRAVENOUS
     Route: 042
  47. PACLITAXEL [Suspect]
     Active Substance: PACLITAXEL
     Dosage: 243.0 MILLIGRAM, DOSAGE FORM: SOLUTION FOR INJECTION
     Route: 042
  48. PACLITAXEL [Suspect]
     Active Substance: PACLITAXEL
     Dosage: 393.0 MILLIGRAM, DOSAGE FORM: SOLUTION FOR INJECTION
     Route: 042
  49. PACLITAXEL [Suspect]
     Active Substance: PACLITAXEL
     Dosage: UNK, DOSAGE FORM: SOLUTION FOR INJECTION
     Route: 042
  50. PACLITAXEL [Suspect]
     Active Substance: PACLITAXEL
     Dosage: UNK, DOSAGE FORM: SOLUTION FOR INJECTION
     Route: 042
  51. PEGFILGRASTIM [Suspect]
     Active Substance: PEGFILGRASTIM
     Indication: Supportive care
     Dosage: 6.0 MILLIGRAM
     Route: 058
  52. RANITIDINE [Suspect]
     Active Substance: RANITIDINE
     Indication: Tardive dyskinesia
     Dosage: UNK
     Route: 048
  53. RANITIDINE [Suspect]
     Active Substance: RANITIDINE
     Indication: Product used for unknown indication
  54. RANITIDINE HYDROCHLORIDE [Suspect]
     Active Substance: RANITIDINE HYDROCHLORIDE
     Indication: Tardive dyskinesia
     Dosage: 300.0 MILLIGRAM, 1 EVERY 1 DAYS
     Route: 048
  55. RANITIDINE HYDROCHLORIDE [Suspect]
     Active Substance: RANITIDINE HYDROCHLORIDE
     Indication: Product used for unknown indication
     Dosage: 150.0 MILLIGRAM, 2 EVERY 1 DAYS
     Route: 048
  56. RANITIDINE HYDROCHLORIDE [Suspect]
     Active Substance: RANITIDINE HYDROCHLORIDE
     Dosage: UNK
     Route: 048
  57. TRASTUZUMAB [Suspect]
     Active Substance: TRASTUZUMAB
     Indication: Tardive dyskinesia
     Dosage: 626.0 MILLIGRAM
     Route: 065
  58. TRASTUZUMAB [Suspect]
     Active Substance: TRASTUZUMAB
     Indication: Product used for unknown indication
     Dosage: 866.0 MILLIGRAM
     Route: 065
  59. TRASTUZUMAB [Suspect]
     Active Substance: TRASTUZUMAB
     Dosage: UNK
     Route: 065
  60. TRASTUZUMAB [Suspect]
     Active Substance: TRASTUZUMAB
     Dosage: UNK
     Route: 048

REACTIONS (12)
  - Atelectasis [Recovered/Resolved]
  - Computerised tomogram thorax [Recovered/Resolved]
  - Computerised tomogram thorax abnormal [Recovered/Resolved]
  - Gastrointestinal disorder [Recovered/Resolved]
  - Off label use [Recovered/Resolved]
  - Hypoxia [Recovered/Resolved]
  - Cough [Recovered/Resolved]
  - Dyspnoea [Recovered/Resolved]
  - Fatigue [Recovered/Resolved]
  - Nausea [Recovered/Resolved]
  - Pyrexia [Recovered/Resolved]
  - Rash [Recovered/Resolved]
